FAERS Safety Report 4414400-7 (Version None)
Quarter: 2004Q3

REPORT INFORMATION
  Report Type: 
  Country: None (occurrence: None)
  Receive Date: 20040803
  Receipt Date: 20040714
  Transmission Date: 20050211
  Serious: Yes (Hospitalization)
  Sender: FDA-Public Use
  Company Number: JP-MERCK-0407USA01576

PATIENT
  Age: 68 Year
  Sex: Male
  Weight: 66 kg

DRUGS (6)
  1. [THERAPY UNSPECIFIED] [Concomitant]
     Indication: HEPATITIS C
     Route: 048
  2. [THERAPY UNSPECIFIED] [Suspect]
     Route: 048
  3. STRONGER NEO-MINOPHAGEN C [Concomitant]
     Indication: CHRONIC HEPATITIS
     Route: 042
  4. INDOCIN [Suspect]
     Indication: ANTIPYRESIS
     Route: 054
     Dates: start: 20040530, end: 20040530
  5. INDOCIN [Suspect]
     Indication: ANALGESIC EFFECT
     Route: 054
     Dates: start: 20040530, end: 20040530
  6. VITAMEDIN [Concomitant]
     Indication: CHRONIC HEPATITIS
     Route: 042

REACTIONS (3)
  - INTERSTITIAL LUNG DISEASE [None]
  - PLEURAL EFFUSION [None]
  - RASH [None]
